FAERS Safety Report 16471402 (Version 1)
Quarter: 2019Q2

REPORT INFORMATION
  Report Type: Spontaneous
  Country: NL (occurrence: NL)
  Receive Date: 20190624
  Receipt Date: 20190624
  Transmission Date: 20190711
  Serious: Yes (Other)
  Sender: FDA-Public Use
  Company Number: NL-ALLERGAN-1925442US

PATIENT
  Sex: Female

DRUGS (2)
  1. RIFAMPICIN [Suspect]
     Active Substance: RIFAMPIN
     Indication: EXPOSURE DURING PREGNANCY
     Dosage: 300 MG, QD
     Route: 064
  2. URSODEOXYCHOLIC ACID UNK [Suspect]
     Active Substance: URSODIOL
     Indication: EXPOSURE DURING PREGNANCY
     Dosage: 1000 MG, QD
     Route: 064

REACTIONS (6)
  - Foetal hypokinesia [Unknown]
  - Foetal growth abnormality [Unknown]
  - Pulmonary artery stenosis [Unknown]
  - Atrial septal defect [Unknown]
  - Premature baby [Unknown]
  - Cleft lip [Unknown]
